FAERS Safety Report 19150396 (Version 2)
Quarter: 2021Q3

REPORT INFORMATION
  Report Type: Report from Study
  Country: US (occurrence: US)
  Receive Date: 20210418
  Receipt Date: 20210710
  Transmission Date: 20211014
  Serious: No
  Sender: FDA-Public Use
  Company Number: NVSC2021US085923

PATIENT
  Age: 51 Year
  Sex: Female

DRUGS (1)
  1. KESIMPTA [Suspect]
     Active Substance: OFATUMUMAB
     Indication: MULTIPLE SCLEROSIS
     Dosage: 20 MG, QMO
     Route: 058
     Dates: start: 20210315

REACTIONS (6)
  - Nausea [Unknown]
  - Device leakage [Unknown]
  - Pyrexia [Unknown]
  - Palpitations [Unknown]
  - Injection site irritation [Unknown]
  - Chills [Unknown]

NARRATIVE: CASE EVENT DATE: 20210315
